FAERS Safety Report 5388679-1 (Version None)
Quarter: 2007Q3

REPORT INFORMATION
  Report Type: 
  Country: None (occurrence: None)
  Receive Date: 20070716
  Receipt Date: 20070705
  Transmission Date: 20080115
  Serious: Yes (Hospitalization)
  Sender: FDA-Public Use
  Company Number: GB-ABBOTT-07P-167-0370724-00

PATIENT
  Sex: Female
  Weight: 59 kg

DRUGS (5)
  1. HUMIRA [Suspect]
     Indication: RHEUMATOID ARTHRITIS
     Route: 058
     Dates: start: 20060729, end: 20061206
  2. PREDNISOLONE [Concomitant]
     Indication: RHEUMATOID ARTHRITIS
  3. DICLOFENAC [Concomitant]
     Indication: RHEUMATOID ARTHRITIS
     Dates: end: 20061106
  4. OMEPRAZOLE [Concomitant]
     Indication: GASTROINTESTINAL DISORDER
  5. TRAMADOL HCL [Concomitant]
     Indication: PAIN

REACTIONS (6)
  - HAEMORRHAGE [None]
  - LOCALISED INFECTION [None]
  - NAIL DISORDER [None]
  - SKIN DISCOLOURATION [None]
  - SKIN LESION [None]
  - VASCULITIS [None]
